FAERS Safety Report 4692744-1 (Version None)
Quarter: 2005Q2

REPORT INFORMATION
  Report Type: 
  Country: None (occurrence: None)
  Receive Date: 20050617
  Receipt Date: 20050602
  Transmission Date: 20051028
  Serious: Yes (Other)
  Sender: FDA-Public Use
  Company Number: 406103

PATIENT
  Age: 70 Year
  Sex: Female

DRUGS (1)
  1. CARVEDILOL [Suspect]
     Indication: DRUG USE FOR UNKNOWN INDICATION
     Dosage: 2.5MG PER DAY
     Route: 065

REACTIONS (1)
  - DELIRIUM [None]
